FAERS Safety Report 5705956-2 (Version None)
Quarter: 2008Q2

REPORT INFORMATION
  Report Type: 
  Country: None (occurrence: None)
  Receive Date: 20080411
  Receipt Date: 20080403
  Transmission Date: 20081010
  Serious: Yes (Life-Threatening, Hospitalization, Other)
  Sender: FDA-Public Use
  Company Number: TPA2008A00395

PATIENT
  Age: 74 Year
  Sex: Male
  Weight: 86.637 kg

DRUGS (14)
  1. PIOGLITAZONE HCL [Suspect]
     Indication: CARDIOVASCULAR EVENT PROPHYLAXIS
     Dosage: 1 IN 1 D, PER ORAL
     Route: 048
     Dates: start: 20070427, end: 20080201
  2. PIOGLITAZONE HCL [Suspect]
     Indication: CEREBROVASCULAR ACCIDENT PROPHYLAXIS
     Dosage: 1 IN 1 D, PER ORAL
     Route: 048
     Dates: start: 20070427, end: 20080201
  3. LASIX [Concomitant]
  4. SIMVASTATIN [Concomitant]
  5. METOPROLOL TARTRATE [Concomitant]
  6. VALSARTAN [Concomitant]
  7. TERAZOSIN HCL [Concomitant]
  8. ASPIRIN [Concomitant]
  9. CLOPIDOGREL [Concomitant]
  10. ISOSORBIDE SA (ISOSORBIDE) [Concomitant]
  11. LORAZEPAM [Concomitant]
  12. ALBUTEROL INHALER (SALBUTAMOL) [Concomitant]
  13. LIPITOR [Concomitant]
  14. ZANAFLEX [Concomitant]

REACTIONS (8)
  - BACK PAIN [None]
  - BRADYCARDIA [None]
  - CARDIAC FAILURE CONGESTIVE [None]
  - CARDIOMEGALY [None]
  - DEHYDRATION [None]
  - HYPOTENSION [None]
  - PNEUMONIA [None]
  - RESPIRATORY DISTRESS [None]
